FAERS Safety Report 5915431-8 (Version None)
Quarter: 2008Q4

REPORT INFORMATION
  Report Type: 
  Country: None (occurrence: None)
  Receive Date: 20081010
  Receipt Date: 20080929
  Transmission Date: 20090506
  Serious: Yes (Other)
  Sender: FDA-Public Use
  Company Number: US-PFIZER INC-2008045044

PATIENT
  Sex: Male
  Weight: 104.3 kg

DRUGS (7)
  1. CHANTIX [Suspect]
     Indication: SMOKING CESSATION THERAPY
     Dates: start: 20080510
  2. ANALGESICS [Concomitant]
  3. LITHIUM [Concomitant]
  4. GABAPENTIN [Concomitant]
  5. VICODIN [Concomitant]
  6. MORPHINE [Concomitant]
  7. OTHER RESPIRATORY SYSTEM PRODUCTS [Concomitant]

REACTIONS (7)
  - ABASIA [None]
  - AGGRESSION [None]
  - DEPRESSED MOOD [None]
  - DYSPNOEA [None]
  - HOMICIDAL IDEATION [None]
  - INFLUENZA LIKE ILLNESS [None]
  - MYOCARDIAL INFARCTION [None]
